FAERS Safety Report 14688098 (Version 3)
Quarter: 2018Q3

REPORT INFORMATION
  Report Type: Spontaneous
  Country: US (occurrence: US)
  Receive Date: 20180328
  Receipt Date: 20180907
  Transmission Date: 20181010
  Serious: No
  Sender: FDA-Public Use
  Company Number: US-PFIZER INC-2018126732

PATIENT
  Age: 51 Year
  Sex: Female

DRUGS (3)
  1. BOSULIF [Suspect]
     Active Substance: BOSUTINIB MONOHYDRATE
     Dosage: 300 MG, UNK (STARTED 300 MG THE SECOND WEEK)
     Dates: start: 201803
  2. BOSULIF [Suspect]
     Active Substance: BOSUTINIB MONOHYDRATE
     Dosage: 200 MG, UNK (200 MG FOR THE FIRST WEEK)
     Dates: start: 20180316
  3. BOSULIF [Suspect]
     Active Substance: BOSUTINIB MONOHYDRATE
     Dosage: 400 MG, 1X/DAY

REACTIONS (5)
  - Constipation [Unknown]
  - Diarrhoea [Recovered/Resolved]
  - Headache [Unknown]
  - Nausea [Unknown]
  - Flatulence [Unknown]

NARRATIVE: CASE EVENT DATE: 201803
